FAERS Safety Report 19839946 (Version 1)
Quarter: 2021Q3

REPORT INFORMATION
  Report Type: Spontaneous
  Country: IT (occurrence: IT)
  Receive Date: 20210915
  Receipt Date: 20210915
  Transmission Date: 20211014
  Serious: Yes (Life-Threatening, Other)
  Sender: FDA-Public Use
  Company Number: IT-MYLANLABS-2021M1062097

PATIENT
  Age: 82 Year
  Sex: Female

DRUGS (13)
  1. VANCOMICINA MYLAN [Suspect]
     Active Substance: VANCOMYCIN
     Indication: ENTEROCOCCAL INFECTION
     Dosage: 1500 MILLIGRAM, QD
     Route: 042
     Dates: start: 20210329, end: 20210331
  2. CARDIOASPIRIN [Concomitant]
     Active Substance: ASPIRIN
     Dosage: 100 MILLIGRAM
     Route: 048
  3. LANTUS [Concomitant]
     Active Substance: INSULIN GLARGINE
     Dosage: UNK
  4. ALPRAZOLAM. [Concomitant]
     Active Substance: ALPRAZOLAM
     Dosage: 10 GTT DROPS
     Route: 048
  5. TORVAST [Concomitant]
     Active Substance: ATORVASTATIN
     Dosage: 20 MILLIGRAM
     Route: 048
  6. LEVOPRAID                          /00314301/ [Concomitant]
     Active Substance: SULPIRIDE
     Dosage: 30 GTT DROPS
     Route: 048
  7. LASIX [Concomitant]
     Active Substance: FUROSEMIDE
     Dosage: 75 MILLIGRAM
     Route: 048
  8. FOLIC ACID. [Concomitant]
     Active Substance: FOLIC ACID
     Dosage: 5 MILLIGRAM
     Route: 048
  9. APIDRA [Concomitant]
     Active Substance: INSULIN GLULISINE
     Dosage: UNK
  10. TRITTICO AC [Concomitant]
     Active Substance: TRAZODONE HYDROCHLORIDE
     Dosage: 20 GTT DROPS
     Route: 048
  11. TICAGRELOR. [Concomitant]
     Active Substance: TICAGRELOR
     Dosage: 90 MILLIGRAM
     Route: 048
  12. BISOPROLOL FUMARATE. [Concomitant]
     Active Substance: BISOPROLOL FUMARATE
     Dosage: 5 MILLIGRAM
     Route: 048
  13. RIOPAN                             /00141701/ [Concomitant]
     Active Substance: MAGALDRATE
     Dosage: 2400 MILLIGRAM
     Route: 048

REACTIONS (2)
  - Lymphopenia [Recovering/Resolving]
  - Neutropenia [Recovering/Resolving]

NARRATIVE: CASE EVENT DATE: 20210331
